FAERS Safety Report 12211121 (Version 2)
Quarter: 2016Q2

REPORT INFORMATION
  Report Type: Spontaneous
  Country: IT (occurrence: IT)
  Receive Date: 20160325
  Receipt Date: 20160405
  Transmission Date: 20160815
  Serious: Yes (Other)
  Sender: FDA-Public Use
  Company Number: IT-PFIZER INC-2016165903

PATIENT
  Age: 67 Year
  Sex: Female
  Weight: 65 kg

DRUGS (2)
  1. DEPAKIN [Interacting]
     Active Substance: VALPROATE SODIUM
     Dosage: 800 MG, DAILY
     Route: 042
     Dates: start: 20160307, end: 20160308
  2. AURANTIN [Suspect]
     Active Substance: PHENYTOIN SODIUM
     Dosage: 300 MG, DAILY
     Route: 042
     Dates: start: 20160301, end: 20160313

REACTIONS (2)
  - Drug interaction [Not Recovered/Not Resolved]
  - Rash generalised [Not Recovered/Not Resolved]

NARRATIVE: CASE EVENT DATE: 20160308
